FAERS Safety Report 19589128 (Version 3)
Quarter: 2021Q3

REPORT INFORMATION
  Report Type: Spontaneous
  Country: AR (occurrence: AR)
  Receive Date: 20210721
  Receipt Date: 20210810
  Transmission Date: 20211014
  Serious: Yes (Other)
  Sender: FDA-Public Use
  Company Number: AR-PFIZER INC-2021854032

PATIENT
  Age: 68 Year
  Sex: Female
  Weight: 73 kg

DRUGS (2)
  1. IBRANCE [Suspect]
     Active Substance: PALBOCICLIB
     Indication: BREAST CANCER METASTATIC
     Dosage: 125 MG, CYCLIC (DAILY, 3X1 SCHEME)
     Dates: start: 20171031
  2. IBRANCE [Suspect]
     Active Substance: PALBOCICLIB
     Indication: METASTASES TO BONE

REACTIONS (6)
  - Malaise [Unknown]
  - Neoplasm progression [Unknown]
  - Foot fracture [Unknown]
  - Visual impairment [Unknown]
  - Fall [Unknown]
  - Arthralgia [Unknown]

NARRATIVE: CASE EVENT DATE: 20210426
